FAERS Safety Report 14169283 (Version 1)
Quarter: 2017Q4

REPORT INFORMATION
  Report Type: Spontaneous
  Country: US (occurrence: US)
  Receive Date: 20171107
  Receipt Date: 20171107
  Transmission Date: 20180321
  Serious: Yes (Other)
  Sender: FDA-Public Use
  Company Number: None

PATIENT
  Age: 64 Year
  Sex: Female
  Weight: 60.75 kg

DRUGS (2)
  1. COPAXONE [Suspect]
     Active Substance: GLATIRAMER ACETATE
     Indication: MULTIPLE SCLEROSIS
     Dosage: ?          QUANTITY:1 INJECTION(S);OTHER FREQUENCY:3 TIMES A WEEK;OTHER ROUTE:SUBCUTANEOUSLY?
     Route: 058
     Dates: start: 20080901, end: 20171030
  2. VESACARE [Concomitant]

REACTIONS (5)
  - Paraesthesia [None]
  - Muscular weakness [None]
  - Dysgeusia [None]
  - Flushing [None]
  - Dizziness [None]

NARRATIVE: CASE EVENT DATE: 20171030
